FAERS Safety Report 7047861-8 (Version None)
Quarter: 2010Q4

REPORT INFORMATION
  Report Type: 
  Country: None (occurrence: None)
  Receive Date: 20101015
  Receipt Date: 20100308
  Transmission Date: 20110411
  Serious: Yes (Hospitalization)
  Sender: FDA-Public Use
  Company Number: NL-TEVA-251324ISR

PATIENT
  Age: 55 Year
  Sex: Female

DRUGS (3)
  1. METOPROLOL [Suspect]
  2. ACETYLSALICYLIC ACID [Suspect]
  3. AMLODIPINE [Concomitant]

REACTIONS (2)
  - ACUTE MYOCARDIAL INFARCTION [None]
  - ELECTROCARDIOGRAM ST SEGMENT ELEVATION [None]
